FAERS Safety Report 7583750-8 (Version None)
Quarter: 2011Q2

REPORT INFORMATION
  Report Type: 
  Country: None (occurrence: None)
  Receive Date: 20110630
  Receipt Date: 20110622
  Transmission Date: 20111010
  Serious: Yes (Hospitalization)
  Sender: FDA-Public Use
  Company Number: CL-ROCHE-784984

PATIENT
  Sex: Female
  Weight: 50 kg

DRUGS (1)
  1. CAPECITABINE [Suspect]
     Indication: BREAST CANCER
     Dosage: IN THE MORNING AND NIGHT
     Route: 048
     Dates: start: 20110416, end: 20110522

REACTIONS (2)
  - OESOPHAGEAL DISORDER [None]
  - EATING DISORDER [None]
